FAERS Safety Report 8885773 (Version 1)
Quarter: 2012Q4

REPORT INFORMATION
  Report Type: 
  Country: US (occurrence: US)
  Receive Date: 20121101
  Receipt Date: 20121101
  Transmission Date: 20130627
  Serious: No
  Sender: FDA-Public Use
  Company Number: US-009507513-1210USA013763

PATIENT
  Sex: Female

DRUGS (1)
  1. SINGULAIR [Suspect]
     Dosage: UNK
     Route: 048
     Dates: start: 2000

REACTIONS (5)
  - Mood swings [Unknown]
  - Nasopharyngitis [Unknown]
  - Tremor [Recovering/Resolving]
  - Crying [Recovering/Resolving]
  - Conversion disorder [Recovering/Resolving]
